FAERS Safety Report 26133300 (Version 1)
Quarter: 2025Q4

REPORT INFORMATION
  Report Type: Spontaneous
  Country: BR (occurrence: BR)
  Receive Date: 20251209
  Receipt Date: 20251209
  Transmission Date: 20260118
  Serious: Yes (Life-Threatening, Other)
  Sender: ALEXION PHARMACEUTICALS
  Company Number: BR-AstraZeneca-CH-01005694AP

PATIENT
  Sex: Female

DRUGS (1)
  1. SYMBICORT [Suspect]
     Active Substance: BUDESONIDE\FORMOTEROL FUMARATE DIHYDRATE
     Indication: Chronic obstructive pulmonary disease
     Dosage: 6200 MICROGRAM, QD
     Route: 065
     Dates: start: 20251015

REACTIONS (5)
  - Asthmatic crisis [Unknown]
  - Drug ineffective [Unknown]
  - Product taste abnormal [Unknown]
  - Poor quality product administered [Unknown]
  - Intentional dose omission [Unknown]
